FAERS Safety Report 7938015-9 (Version None)
Quarter: 2011Q4

REPORT INFORMATION
  Report Type: 
  Country: None (occurrence: None)
  Receive Date: 20111123
  Receipt Date: 20111117
  Transmission Date: 20120403
  Serious: Yes (Hospitalization)
  Sender: FDA-Public Use
  Company Number: BR-US-EMD SERONO, INC.-7077500

PATIENT
  Sex: Female

DRUGS (5)
  1. ACETAMINOPHEN [Concomitant]
  2. ATENOLOL [Concomitant]
  3. REBIF [Suspect]
     Indication: RELAPSING-REMITTING MULTIPLE SCLEROSIS
     Dates: start: 20030616
  4. HYDROCHLOROTHIAZIDE [Concomitant]
  5. ENALAPRIL MALEATE [Concomitant]

REACTIONS (5)
  - OVARIAN CANCER [None]
  - UTERINE LEIOMYOMA [None]
  - ENDOMETRIOSIS [None]
  - HYPERTENSION [None]
  - INJECTION SITE ERYTHEMA [None]
